FAERS Safety Report 6269052-0 (Version None)
Quarter: 2009Q3

REPORT INFORMATION
  Report Type: 
  Country: None (occurrence: None)
  Receive Date: 20090715
  Receipt Date: 20090703
  Transmission Date: 20100115
  Serious: Yes (Hospitalization)
  Sender: FDA-Public Use
  Company Number: JP-PFIZER INC-2009237478

PATIENT
  Age: 57 Year

DRUGS (5)
  1. *OXALIPLATIN [Suspect]
     Indication: COLORECTAL CANCER
     Dosage: 110 MG, EVERY 2 WEEKS
     Route: 042
     Dates: start: 20080612
  2. SUNITINIB MALATE [Suspect]
     Indication: COLORECTAL CANCER
     Dosage: 50 MG, 1X/DAY, 4 WKS ON 2 WKS OFF
     Route: 048
     Dates: start: 20080612
  3. FLUOROURACIL [Suspect]
     Indication: COLORECTAL CANCER
     Dosage: 680 MG, EVERY 2 WEEKS
     Route: 042
     Dates: start: 20080612
  4. FLUOROURACIL [Suspect]
     Dosage: 4080 MG, EVERY 2 WEEKS
     Route: 042
     Dates: start: 20080612
  5. *FOLINIC ACID [Suspect]
     Indication: COLORECTAL CANCER
     Dosage: 340 MG, EVERY 2 WEEKS
     Route: 042
     Dates: start: 20080612

REACTIONS (1)
  - CEREBRAL INFARCTION [None]
